FAERS Safety Report 17761850 (Version 9)
Quarter: 2024Q2

REPORT INFORMATION
  Report Type: Spontaneous
  Country: US (occurrence: US)
  Receive Date: 20200508
  Receipt Date: 20240425
  Transmission Date: 20240716
  Serious: Yes (Hospitalization, Other)
  Sender: FDA-Public Use
  Company Number: US-PFIZER INC-2019433212

PATIENT
  Age: 77 Year
  Sex: Female
  Weight: 65.77 kg

DRUGS (8)
  1. XELJANZ XR [Suspect]
     Active Substance: TOFACITINIB CITRATE
     Indication: Arthritis
     Dosage: 11MG 1 TABLET BY MOUTH ONCE A DAY
     Route: 048
  2. XELJANZ XR [Suspect]
     Active Substance: TOFACITINIB CITRATE
     Dosage: 11 MG
  3. FOLIC ACID [Concomitant]
     Active Substance: FOLIC ACID
     Dosage: [JUST TAKES ONE OF THOSE NOW]
  4. LISINOPRIL [Concomitant]
     Active Substance: LISINOPRIL
     Indication: Blood pressure abnormal
     Dosage: [20/25MG AND ONLY TAKES HALF OF ONE]
  5. METOPROLOL [Concomitant]
     Active Substance: METOPROLOL
     Dosage: [TAKES JUST ONE A DAY]
  6. PANTOPRAZOLE [Concomitant]
     Active Substance: PANTOPRAZOLE
     Indication: Cardiac disorder
     Dosage: 40 MG
  7. VITAMIN B3 [Concomitant]
     Active Substance: NIACIN
  8. VITAMIN B [Concomitant]
     Active Substance: VITAMIN B

REACTIONS (11)
  - Fall [Unknown]
  - Knee arthroplasty [Unknown]
  - Gastric operation [Unknown]
  - Cardiac pacemaker insertion [Unknown]
  - Nasopharyngitis [Unknown]
  - Fatigue [Unknown]
  - Chest pain [Unknown]
  - Dizziness [Unknown]
  - Headache [Unknown]
  - Bone density decreased [Unknown]
  - Abdominal discomfort [Unknown]

NARRATIVE: CASE EVENT DATE: 20190801
